FAERS Safety Report 7627907-6 (Version None)
Quarter: 2011Q3

REPORT INFORMATION
  Report Type: 
  Country: None (occurrence: None)
  Receive Date: 20110721
  Receipt Date: 20081118
  Transmission Date: 20111222
  Serious: Yes (Other)
  Sender: FDA-Public Use
  Company Number: DE-GENENTECH-321669

PATIENT
  Age: 86 Year
  Sex: Female

DRUGS (1)
  1. LUCENTIS [Suspect]
     Indication: MACULAR DEGENERATION
     Dosage: UNK
     Route: 031
     Dates: start: 20081117

REACTIONS (10)
  - INFLUENZA [None]
  - DEPRESSION [None]
  - TOOTH DISORDER [None]
  - FALL [None]
  - MALAISE [None]
  - UPPER LIMB FRACTURE [None]
  - GALLBLADDER DISORDER [None]
  - CARDIOVASCULAR DISORDER [None]
  - GINGIVITIS [None]
  - VISUAL ACUITY REDUCED [None]
